FAERS Safety Report 5259245-3 (Version None)
Quarter: 2007Q1

REPORT INFORMATION
  Report Type: 
  Country: None (occurrence: None)
  Receive Date: 20070308
  Receipt Date: 20070227
  Transmission Date: 20070707
  Serious: Yes (Other)
  Sender: FDA-Public Use
  Company Number: HK-PFIZER INC-2007016048

PATIENT
  Sex: Female

DRUGS (4)
  1. PHENYTOIN [Suspect]
     Indication: EPILEPSY
  2. PREGABALIN [Suspect]
     Indication: EPILEPSY
  3. VALPROATE SODIUM [Suspect]
     Indication: EPILEPSY
  4. CLOBAZAM [Suspect]
     Indication: EPILEPSY

REACTIONS (5)
  - CEREBELLAR ATROPHY [None]
  - CEREBRAL ATROPHY [None]
  - CONVULSION [None]
  - EXOSTOSIS [None]
  - HEAD INJURY [None]
